FAERS Safety Report 4780560-1 (Version None)
Quarter: 2005Q3

REPORT INFORMATION
  Report Type: 
  Country: None (occurrence: None)
  Receive Date: 20050914
  Receipt Date: 20050427
  Transmission Date: 20060218
  Serious: Yes (Hospitalization, Other)
  Sender: FDA-Public Use
  Company Number: 163-20785-05040568

PATIENT
  Age: 67 Year
  Sex: Male

DRUGS (13)
  1. THALOMID [Suspect]
     Indication: MULTIPLE MYELOMA
     Dosage: ORAL; SEE IMAGE
     Route: 048
     Dates: start: 20010101, end: 20010101
  2. THALOMID [Suspect]
     Indication: MULTIPLE MYELOMA
     Dosage: ORAL; SEE IMAGE
     Route: 048
     Dates: start: 20010401, end: 20010101
  3. THALOMID [Suspect]
     Indication: MULTIPLE MYELOMA
     Dosage: ORAL; SEE IMAGE
     Route: 048
     Dates: start: 20010701, end: 20010101
  4. THALOMID [Suspect]
     Indication: MULTIPLE MYELOMA
     Dosage: ORAL; SEE IMAGE
     Route: 048
     Dates: start: 20011001, end: 20010101
  5. THALOMID [Suspect]
     Indication: MULTIPLE MYELOMA
     Dosage: ORAL; SEE IMAGE
     Route: 048
     Dates: end: 20030701
  6. . [Concomitant]
  7. . [Concomitant]
  8. DEXAMETHASONE [Suspect]
     Indication: MULTIPLE MYELOMA
     Dosage: 10MG TO 40MG, ORAL
     Route: 048
     Dates: start: 19980101, end: 20030101
  9. FAMVIR [Concomitant]
  10. AREDIA [Concomitant]
  11. COUMADIN [Concomitant]
  12. CALCIUM SUPPLEMENTS (CALCIUM) [Concomitant]
  13. VITAMIN SUPPLEMENTS (VITAMINS NOS) [Concomitant]

REACTIONS (6)
  - ASEPTIC NECROSIS BONE [None]
  - BACK PAIN [None]
  - EPIDERMOLYSIS BULLOSA [None]
  - HIP ARTHROPLASTY [None]
  - NEUROPATHY [None]
  - SPINAL LAMINECTOMY [None]
